FAERS Safety Report 10029676 (Version 1)
Quarter: 2014Q1

REPORT INFORMATION
  Report Type: Spontaneous
  Country: US (occurrence: None)
  Receive Date: 20140321
  Receipt Date: 20140321
  Transmission Date: 20141002
  Serious: Yes (Hospitalization, Disabling)
  Sender: FDA-Public Use
  Company Number: None

PATIENT
  Age: 31 Year
  Sex: Male
  Weight: 80.74 kg

DRUGS (2)
  1. HUMIRA [Suspect]
     Indication: ANKYLOSING SPONDYLITIS
     Dosage: 1 INJECTABLE PEN ONCE EVERY 2 WEEKS GIVEN INTO/UNDER THE SKIN
     Dates: start: 20110901, end: 20140215
  2. SULFASALAZINE EC [Suspect]
     Indication: ANKYLOSING SPONDYLITIS
     Dosage: 2 PILLS TWICE DAILY TAKEN BY MOUTH
     Route: 048
     Dates: start: 20080901, end: 20140320

REACTIONS (4)
  - Pain [None]
  - Inflammation [None]
  - White blood cell count increased [None]
  - Chronic myeloid leukaemia [None]
